FAERS Safety Report 13873632 (Version 1)
Quarter: 2017Q3

REPORT INFORMATION
  Report Type: Spontaneous
  Country: US (occurrence: US)
  Receive Date: 20170816
  Receipt Date: 20170816
  Transmission Date: 20171127
  Serious: Yes (Other)
  Sender: FDA-Public Use
  Company Number: US-TEIKOKU PHARMA USA-TPU2017-00487

PATIENT
  Sex: Female
  Weight: 115.77 kg

DRUGS (3)
  1. LYRICA [Suspect]
     Active Substance: PREGABALIN
     Indication: PAIN IN EXTREMITY
     Dates: start: 2008, end: 2011
  2. LYRICA [Suspect]
     Active Substance: PREGABALIN
     Indication: CARPAL TUNNEL SYNDROME
  3. LIDODERM [Suspect]
     Active Substance: LIDOCAINE
     Indication: BACK PAIN
     Dosage: APPLIED TO LOWER BACK ON THE LEFT SIDE
     Route: 061
     Dates: start: 2008

REACTIONS (8)
  - Hip arthroplasty [Unknown]
  - Scar [Unknown]
  - Expired product administered [Unknown]
  - Weight increased [Unknown]
  - Body height decreased [Not Recovered/Not Resolved]
  - Knee operation [Unknown]
  - Spinal operation [Unknown]
  - Carpal tunnel decompression [Unknown]

NARRATIVE: CASE EVENT DATE: 2009
